FAERS Safety Report 18350903 (Version 1)
Quarter: 2020Q4

REPORT INFORMATION
  Report Type: Spontaneous
  Country: CH (occurrence: CH)
  Receive Date: 20201006
  Receipt Date: 20201006
  Transmission Date: 20210114
  Serious: Yes (Other)
  Sender: FDA-Public Use
  Company Number: NVSC2020CH269401

PATIENT

DRUGS (1)
  1. IBUPROFEN SANDOZ [Suspect]
     Active Substance: IBUPROFEN
     Indication: ASTHMA
     Dosage: 600 UNK
     Route: 065

REACTIONS (5)
  - Gastrointestinal disorder [Unknown]
  - Illness [Unknown]
  - Intestinal haemorrhage [Unknown]
  - Lung disorder [Unknown]
  - Product use in unapproved indication [Unknown]
